FAERS Safety Report 8521888-9 (Version None)
Quarter: 2012Q3

REPORT INFORMATION
  Report Type: 
  Country: None (occurrence: None)
  Receive Date: 20120719
  Receipt Date: 20120711
  Transmission Date: 20120928
  Serious: Yes (Death, Hospitalization)
  Sender: FDA-Public Use
  Company Number: DE-JNJFOC-20120608225

PATIENT
  Sex: Female
  Weight: 80 kg

DRUGS (3)
  1. MEMANTINE HYDROCHLORIDE [Concomitant]
     Route: 048
     Dates: end: 20120612
  2. KEPPRA [Concomitant]
     Dates: end: 20120612
  3. XARELTO [Suspect]
     Indication: EMBOLISM VENOUS
     Route: 048
     Dates: start: 20120530, end: 20120612

REACTIONS (8)
  - CEREBRAL HAEMORRHAGE [None]
  - SOMNOLENCE [None]
  - AGITATION [None]
  - STARING [None]
  - SCREAMING [None]
  - SUBDURAL HAEMATOMA [None]
  - SOPOR [None]
  - RESTLESSNESS [None]
